FAERS Safety Report 5546723-2 (Version None)
Quarter: 2007Q4

REPORT INFORMATION
  Report Type: 
  Country: None (occurrence: None)
  Receive Date: 20071211
  Receipt Date: 20071127
  Transmission Date: 20080405
  Serious: Yes (Other)
  Sender: FDA-Public Use
  Company Number: IT-ELI_LILLY_AND_COMPANY-IT200711006268

PATIENT
  Age: 56 Year
  Sex: Male

DRUGS (3)
  1. OLANZAPINE [Suspect]
     Indication: HUNTINGTON'S CHOREA
     Dosage: UNK, UNKNOWN
     Route: 065
  2. ARIPIPRAZOLE [Concomitant]
     Indication: HUNTINGTON'S CHOREA
     Dosage: 2.5 MG, DAILY (1/D)
     Route: 065
  3. ARIPIPRAZOLE [Concomitant]
     Dosage: 5 MG, DAILY (1/D)
     Route: 065

REACTIONS (1)
  - METABOLIC SYNDROME [None]
